FAERS Safety Report 8177886-0 (Version None)
Quarter: 2012Q1

REPORT INFORMATION
  Report Type: 
  Country: None (occurrence: None)
  Receive Date: 20120301
  Receipt Date: 20120224
  Transmission Date: 20120608
  Serious: Yes (Other)
  Sender: FDA-Public Use
  Company Number: US-BAYER-2012-017115

PATIENT
  Age: 41 Year
  Sex: Female

DRUGS (5)
  1. LISINOPRIL [Concomitant]
     Dosage: 30 MG, DAILY
     Route: 048
  2. ZOLOFT [Concomitant]
     Dosage: 100 MG, DAILY
     Route: 048
  3. ASPIRIN [Concomitant]
     Indication: CEREBROVASCULAR ACCIDENT PROPHYLAXIS
     Dosage: DAILY
     Dates: start: 20101124
  4. BUSPAR [Concomitant]
     Dosage: 10 MG, DAILY
     Route: 048
  5. DROSPIRENONE AND ETHINYL ESTRADIOL [Suspect]
     Dosage: UNK
     Dates: end: 20100801

REACTIONS (2)
  - CEREBROVASCULAR ACCIDENT [None]
  - TRANSIENT ISCHAEMIC ATTACK [None]
